FAERS Safety Report 17723877 (Version 3)
Quarter: 2020Q2

REPORT INFORMATION
  Report Type: Spontaneous
  Country: US (occurrence: US)
  Receive Date: 20200429
  Receipt Date: 20200522
  Transmission Date: 20200714
  Serious: Yes (Death, Hospitalization, Other)
  Sender: FDA-Public Use
  Company Number: US-009507513-2004USA008318

PATIENT
  Sex: Male
  Weight: 95.1 kg

DRUGS (2)
  1. ASPIRIN. [Concomitant]
     Active Substance: ASPIRIN
     Indication: ROUTINE HEALTH MAINTENANCE
     Dosage: START DATE: EARLY 2000^S
     Dates: end: 201906
  2. JANUVIA [Suspect]
     Active Substance: SITAGLIPTIN PHOSPHATE
     Indication: TYPE 2 DIABETES MELLITUS
     Dosage: 100 MG TABLET, ONCE DAILY
     Route: 048
     Dates: start: 20090515, end: 20190602

REACTIONS (30)
  - Hepatic failure [Unknown]
  - Metastases to liver [Unknown]
  - Varices oesophageal [Unknown]
  - Pain [Recovering/Resolving]
  - Lipase abnormal [Unknown]
  - QRS axis abnormal [Unknown]
  - Malignant ascites [Unknown]
  - Hepatosplenomegaly [Unknown]
  - Diverticulum intestinal [Unknown]
  - Blood glucose increased [Unknown]
  - Pancreatic carcinoma metastatic [Fatal]
  - Chronic kidney disease [Unknown]
  - Metastases to lymph nodes [Unknown]
  - Cholelithiasis [Unknown]
  - Protein total decreased [Recovered/Resolved]
  - Hepatic cirrhosis [Unknown]
  - Blood lactic acid increased [Unknown]
  - Splenomegaly [Unknown]
  - Haemoglobin decreased [Unknown]
  - Dehydration [Unknown]
  - Portal hypertension [Unknown]
  - Hypotension [Unknown]
  - Dyspnoea [Unknown]
  - Platelet count decreased [Unknown]
  - Metastases to peritoneum [Unknown]
  - Renal failure [Unknown]
  - Acute kidney injury [Recovered/Resolved]
  - Carbon dioxide decreased [Unknown]
  - Haematocrit decreased [Unknown]
  - Liver disorder [Unknown]

NARRATIVE: CASE EVENT DATE: 201904
